FAERS Safety Report 5357988-4 (Version None)
Quarter: 2007Q2

REPORT INFORMATION
  Report Type: 
  Country: None (occurrence: None)
  Receive Date: 20070530
  Receipt Date: 20061213
  Transmission Date: 20071010
  Serious: Yes (Hospitalization)
  Sender: FDA-Public Use
  Company Number: US200612003342

PATIENT
  Age: 52 Year
  Sex: Male
  Weight: 83.9 kg

DRUGS (4)
  1. ZYPREXA [Suspect]
     Dosage: 5 MG, 7.5 MG, 10 MG, 15 MG
     Dates: start: 19961201
  2. PROZAC [Concomitant]
  3. WELLBUTRIN [Concomitant]
  4. NAVANE [Concomitant]

REACTIONS (5)
  - ANGIOPATHY [None]
  - BLOOD CHOLESTEROL INCREASED [None]
  - BLOOD TRIGLYCERIDES INCREASED [None]
  - DIABETES MELLITUS NON-INSULIN-DEPENDENT [None]
  - HYPERTENSION [None]
